FAERS Safety Report 15978952 (Version 1)
Quarter: 2019Q1

REPORT INFORMATION
  Report Type: Spontaneous
  Country: US (occurrence: US)
  Receive Date: 20190219
  Receipt Date: 20190219
  Transmission Date: 20190418
  Serious: No
  Sender: FDA-Public Use
  Company Number: US-BAUSCH-BL-2019-003554

PATIENT
  Age: 74 Year
  Sex: Female
  Weight: 99.88 kg

DRUGS (1)
  1. TRETINOIN. [Suspect]
     Active Substance: TRETINOIN
     Indication: ACTINIC KERATOSIS
     Route: 061
     Dates: start: 2018

REACTIONS (7)
  - Depression [Unknown]
  - Feeling abnormal [Unknown]
  - Dry skin [Unknown]
  - Erythema [Unknown]
  - Fall [Unknown]
  - Joint injury [Not Recovered/Not Resolved]
  - Skin exfoliation [Unknown]

NARRATIVE: CASE EVENT DATE: 201812
